APPROVED DRUG PRODUCT: GENTAMICIN SULFATE
Active Ingredient: GENTAMICIN SULFATE
Strength: EQ 0.1% BASE
Dosage Form/Route: OINTMENT;TOPICAL
Application: A062477 | Product #001
Applicant: SUN PHARMA CANADA INC
Approved: Dec 23, 1983 | RLD: No | RS: No | Type: DISCN